FAERS Safety Report 11616033 (Version 3)
Quarter: 2015Q4

REPORT INFORMATION
  Report Type: Report from Study
  Country: US (occurrence: US)
  Receive Date: 20151009
  Receipt Date: 20151117
  Transmission Date: 20160304
  Serious: Yes (Hospitalization, Other)
  Sender: FDA-Public Use
  Company Number: US-GILEAD-2015-0176119

PATIENT
  Age: 34 Year
  Sex: Female

DRUGS (3)
  1. AMBRISENTAN [Suspect]
     Active Substance: AMBRISENTAN
     Indication: PRODUCT USED FOR UNKNOWN INDICATION
     Dosage: 10 MG, QD
     Route: 065
     Dates: start: 20140820
  2. REMODULIN [Concomitant]
     Active Substance: TREPROSTINIL
  3. VENTAVIS [Concomitant]
     Active Substance: ILOPROST

REACTIONS (4)
  - Seizure [Unknown]
  - Device dislocation [Unknown]
  - Loss of consciousness [Unknown]
  - Dizziness [Unknown]
